FAERS Safety Report 7713326-0 (Version None)
Quarter: 2011Q3

REPORT INFORMATION
  Report Type: 
  Country: None (occurrence: None)
  Receive Date: 20110826
  Receipt Date: 20110819
  Transmission Date: 20111222
  Serious: Yes (Other)
  Sender: FDA-Public Use
  Company Number: CHPA2011US11170

PATIENT
  Age: 49 Year
  Sex: Female

DRUGS (3)
  1. AVAPRO [Concomitant]
     Indication: HYPERTENSION
     Dosage: UNK
     Route: 048
  2. PREVACID 24 HR [Suspect]
     Indication: DYSPEPSIA
     Dosage: 15 MG, BID
     Route: 048
     Dates: start: 20110319, end: 20110415
  3. PREVACID 24 HR [Suspect]
     Indication: GASTROOESOPHAGEAL REFLUX DISEASE
     Dosage: 15 MG, QD
     Route: 048
     Dates: start: 20110415, end: 20110819

REACTIONS (5)
  - OVERDOSE [None]
  - INCORRECT DRUG ADMINISTRATION DURATION [None]
  - OFF LABEL USE [None]
  - CHOLECYSTECTOMY [None]
  - WRONG TECHNIQUE IN DRUG USAGE PROCESS [None]
